FAERS Safety Report 7694263-7 (Version None)
Quarter: 2011Q3

REPORT INFORMATION
  Report Type: 
  Country: None (occurrence: None)
  Receive Date: 20110819
  Receipt Date: 20110818
  Transmission Date: 20111222
  Serious: Yes (Hospitalization)
  Sender: FDA-Public Use
  Company Number: FR-GLAXOSMITHKLINE-B0727419A

PATIENT
  Sex: Female

DRUGS (19)
  1. ALENDRONATE SODIUM [Concomitant]
     Dosage: 1UNIT WEEKLY
     Route: 065
  2. NEXIUM [Concomitant]
     Dosage: 20MG PER DAY
     Route: 065
  3. STABLON [Concomitant]
     Dosage: 2UNIT PER DAY
     Route: 065
  4. ACETAMINOPHEN [Concomitant]
     Route: 065
  5. LOVAZA [Concomitant]
     Route: 065
  6. LUTEIN [Concomitant]
     Route: 065
  7. AUGMENTIN '125' [Suspect]
     Indication: ANTIBIOTIC THERAPY
     Dosage: 1G TWICE PER DAY
     Route: 048
     Dates: start: 20110513
  8. AMOXICILLIN TRIHYDRATE [Suspect]
     Indication: ANTIBIOTIC THERAPY
     Route: 048
     Dates: start: 20110524, end: 20110607
  9. BACTRIM DS [Suspect]
     Indication: ANTIBIOTIC THERAPY
     Dosage: 500MG THREE TIMES PER DAY
     Route: 048
     Dates: start: 20110531, end: 20110602
  10. FLECAINIDE ACETATE [Concomitant]
     Dosage: 150MG PER DAY
     Route: 065
  11. LITHIUM CARBONATE [Concomitant]
     Route: 065
  12. GENTAMICIN [Suspect]
     Indication: ANTIBIOTIC THERAPY
     Route: 048
     Dates: start: 20110525, end: 20110531
  13. IRBESARTAN AND HYDROCHLOROTHIAZIDE [Concomitant]
     Dosage: 1UNIT PER DAY
     Route: 065
  14. ZOVIRAX [Suspect]
     Indication: PRODUCT USED FOR UNKNOWN INDICATION
     Dates: start: 20110524, end: 20110528
  15. STEROGYL [Concomitant]
     Route: 065
  16. VITAMIN B COMPLEX CAP [Concomitant]
     Route: 065
  17. VITAMIN E [Concomitant]
     Route: 065
  18. GABACET [Concomitant]
     Route: 065
  19. POLYKARAYA [Concomitant]
     Dosage: 1UNIT PER DAY
     Route: 065

REACTIONS (6)
  - AGGRESSION [None]
  - PAIN [None]
  - RENAL FAILURE [None]
  - CONFUSIONAL STATE [None]
  - CHILLS [None]
  - DIARRHOEA [None]
